FAERS Safety Report 10244015 (Version 1)
Quarter: 2014Q2

REPORT INFORMATION
  Report Type: Report from Study
  Country: CA (occurrence: CA)
  Receive Date: 20140618
  Receipt Date: 20140618
  Transmission Date: 20141212
  Serious: Yes (Other)
  Sender: FDA-Public Use
  Company Number: CA-JNJFOC-20140609433

PATIENT
  Age: 71 Year
  Sex: Female
  Weight: 142 kg

DRUGS (12)
  1. REMICADE [Suspect]
     Indication: CROHN^S DISEASE
     Route: 042
     Dates: start: 20081212
  2. REMICADE [Suspect]
     Indication: CROHN^S DISEASE
     Route: 042
     Dates: start: 201404
  3. REMICADE [Suspect]
     Indication: CROHN^S DISEASE
     Route: 042
     Dates: start: 201405
  4. NITRO [Suspect]
     Indication: ANGINA UNSTABLE
     Route: 065
     Dates: start: 2014
  5. METFORMIN [Concomitant]
     Route: 065
  6. INSULIN (LANTUS) [Concomitant]
     Route: 065
  7. WARFARIN [Concomitant]
     Route: 065
  8. RAMIPRIL [Concomitant]
     Route: 065
  9. SIMVASTATIN [Concomitant]
     Route: 065
  10. IMURAN [Concomitant]
     Route: 065
  11. B12 [Concomitant]
     Route: 065
  12. ADVAIR [Concomitant]
     Route: 065

REACTIONS (3)
  - Angina unstable [Not Recovered/Not Resolved]
  - Prothrombin time prolonged [Recovered/Resolved]
  - Headache [Not Recovered/Not Resolved]
